FAERS Safety Report 10238846 (Version 1)
Quarter: 2014Q2

REPORT INFORMATION
  Report Type: Spontaneous
  Country: US (occurrence: None)
  Receive Date: 20140613
  Receipt Date: 20140613
  Transmission Date: 20141212
  Serious: Yes (Hospitalization, Other)
  Sender: FDA-Public Use
  Company Number: None

PATIENT
  Age: 65 Year
  Sex: Female
  Weight: 120.2 kg

DRUGS (22)
  1. ENOXAPARIN SODIUM [Suspect]
     Indication: UNEVALUABLE INVESTIGATION
     Dates: start: 20131202, end: 20131205
  2. ACTOS [Concomitant]
  3. BYSTOLIC [Concomitant]
  4. OPINIOROLE [Concomitant]
  5. IMDUR [Concomitant]
  6. CARAFATE [Concomitant]
  7. LASIX [Concomitant]
  8. FERROUS SULFATE [Concomitant]
  9. KLOR-CON [Concomitant]
  10. PROTONIX [Concomitant]
  11. MAG-OX [Concomitant]
  12. VITAMIN D-2 [Concomitant]
  13. OS-CAL [Concomitant]
  14. XARELTO [Concomitant]
  15. ADVAIR [Concomitant]
  16. GLUCOPHAGE [Concomitant]
  17. C PAP MACHINE [Concomitant]
  18. ELEVATED TOILET SEAT [Concomitant]
  19. TRANSFER TABLET [Concomitant]
  20. SHOWER DRAIN [Concomitant]
  21. WALKER SEAT [Concomitant]
  22. DISPOSABLE UNDERWEAR [Concomitant]

REACTIONS (8)
  - Abdominal wall haematoma [None]
  - Haemorrhage [None]
  - Pain [None]
  - Hypokinesia [None]
  - Abasia [None]
  - Abdominal distension [None]
  - Swelling [None]
  - Thrombosis [None]
